FAERS Safety Report 4818709-4 (Version None)
Quarter: 2005Q4

REPORT INFORMATION
  Report Type: 
  Country: None (occurrence: None)
  Receive Date: 20051101
  Receipt Date: 20051021
  Transmission Date: 20060501
  Serious: Yes (Hospitalization, Other)
  Sender: FDA-Public Use
  Company Number: USA-2005-0021637

PATIENT
  Age: 60 Year
  Sex: Male

DRUGS (1)
  1. MS CONTIN [Suspect]

REACTIONS (17)
  - AGGRESSION [None]
  - ARTHRALGIA [None]
  - BACK PAIN [None]
  - CONSTIPATION [None]
  - DEPRESSED LEVEL OF CONSCIOUSNESS [None]
  - DISEASE PROGRESSION [None]
  - HALLUCINATIONS, MIXED [None]
  - MENINGEAL NEOPLASM [None]
  - NAUSEA [None]
  - NEUTROPHIL PERCENTAGE INCREASED [None]
  - PAIN [None]
  - PRODUCTIVE COUGH [None]
  - PYREXIA [None]
  - SHOULDER PAIN [None]
  - SOMNOLENCE [None]
  - URINARY INCONTINENCE [None]
  - WHITE BLOOD CELL COUNT INCREASED [None]
